FAERS Safety Report 5232505-8 (Version None)
Quarter: 2007Q1

REPORT INFORMATION
  Report Type: 
  Country: None (occurrence: None)
  Receive Date: 20070207
  Receipt Date: 20070126
  Transmission Date: 20070707
  Serious: Yes (Other)
  Sender: FDA-Public Use
  Company Number: JP-ROCHE-476390

PATIENT
  Age: 59 Year
  Sex: Male

DRUGS (1)
  1. ROCEPHIN [Suspect]
     Indication: BRONCHITIS
     Dosage: INDICATION REPORTED AS BRONCHITIS, PHARYNGITIS. CEFTRIAXONE WAS DILUTED WITH 2500 CC NORMAL SALINE +
     Route: 041
     Dates: start: 20061210, end: 20061213

REACTIONS (1)
  - HEPATITIS [None]
